FAERS Safety Report 4456249-5 (Version None)
Quarter: 2004Q3

REPORT INFORMATION
  Report Type: 
  Country: None (occurrence: None)
  Receive Date: 20040920
  Receipt Date: 20040906
  Transmission Date: 20050211
  Serious: Yes (Hospitalization, Disabling)
  Sender: FDA-Public Use
  Company Number: 2004AP04730

PATIENT
  Age: 69 Year
  Sex: Female

DRUGS (9)
  1. IRESSA [Suspect]
     Indication: NON-SMALL CELL LUNG CANCER
     Dosage: 250 MG DAILY PO
     Route: 048
     Dates: start: 20040728
  2. INNOLET [Concomitant]
  3. DOGMATIL [Concomitant]
  4. ALMARL [Concomitant]
  5. URSOSAN [Concomitant]
  6. INHIBACE ^ANDREU^ [Concomitant]
  7. HERBESSER ^DELTA^ [Concomitant]
  8. LENDORMIN [Concomitant]
  9. ZANTAC [Concomitant]

REACTIONS (2)
  - ATRIOVENTRICULAR BLOCK [None]
  - HEPATIC FUNCTION ABNORMAL [None]
